FAERS Safety Report 18031612 (Version 5)
Quarter: 2021Q1

REPORT INFORMATION
  Report Type: Spontaneous
  Country: US (occurrence: US)
  Receive Date: 20200716
  Receipt Date: 20210204
  Transmission Date: 20210419
  Serious: No
  Sender: FDA-Public Use
  Company Number: US-PFIZER INC-2020271911

PATIENT
  Age: 72 Year
  Sex: Female

DRUGS (1)
  1. IBRANCE [Suspect]
     Active Substance: PALBOCICLIB
     Indication: BREAST CANCER METASTATIC
     Dosage: 125 MG, DAILY (W/FOOD)
     Route: 048

REACTIONS (8)
  - Headache [Unknown]
  - Dyspnoea exertional [Unknown]
  - Swelling [Unknown]
  - Cough [Unknown]
  - Hot flush [Unknown]
  - Fatigue [Unknown]
  - Dry eye [Unknown]
  - Neoplasm progression [Unknown]

NARRATIVE: CASE EVENT DATE: 20200707
